FAERS Safety Report 5383452-2 (Version None)
Quarter: 2007Q3

REPORT INFORMATION
  Report Type: 
  Country: None (occurrence: None)
  Receive Date: 20070710
  Receipt Date: 20070703
  Transmission Date: 20080115
  Serious: Yes (Hospitalization)
  Sender: FDA-Public Use
  Company Number: AU-BOEHRINGER INGELHEIM PHARMACEUTICALS, INC.-2007-BP-16629AU

PATIENT
  Age: 69 Year
  Sex: Male

DRUGS (3)
  1. MOBIC [Suspect]
     Route: 048
     Dates: start: 20061004
  2. ASTRIX [Concomitant]
  3. AUGMENTIN FORTE (AMOXYCILLIN) [Concomitant]

REACTIONS (1)
  - HAEMORRHAGE [None]
